FAERS Safety Report 4866024-5 (Version None)
Quarter: 2005Q4

REPORT INFORMATION
  Report Type: 
  Country: None (occurrence: None)
  Receive Date: 20051214
  Receipt Date: 20051129
  Transmission Date: 20060501
  Serious: Yes (Congenital Anomaly)
  Sender: FDA-Public Use
  Company Number: 426875

PATIENT
  Sex: 0

DRUGS (1)
  1. ACCUTANE [Suspect]
     Indication: ACNE

REACTIONS (8)
  - CONGENITAL AORTIC ATRESIA [None]
  - DEXTROCARDIA [None]
  - DOUBLE OUTLET RIGHT VENTRICLE [None]
  - DRUG EXPOSURE DURING PREGNANCY [None]
  - FACIAL DYSMORPHISM [None]
  - HEART DISEASE CONGENITAL [None]
  - HYDROCEPHALUS [None]
  - PREGNANCY [None]
